FAERS Safety Report 7269181-9 (Version None)
Quarter: 2011Q1

REPORT INFORMATION
  Report Type: 
  Country: None (occurrence: None)
  Receive Date: 20110119
  Receipt Date: 20100612
  Transmission Date: 20110831
  Serious: No
  Sender: FDA-Public Use
  Company Number: WIL-022-10-GB

PATIENT
  Age: 12 Year
  Sex: Female

DRUGS (2)
  1. ANAESTHETIC [Concomitant]
  2. WILATE [Suspect]
     Indication: NOONAN SYNDROME
     Dosage: I.V.
     Route: 042
     Dates: start: 20101101, end: 20101101

REACTIONS (1)
  - OXYGEN SATURATION DECREASED [None]
